FAERS Safety Report 9692667 (Version 1)
Quarter: 2013Q4

REPORT INFORMATION
  Report Type: Spontaneous
  Country: US (occurrence: None)
  Receive Date: 20131115
  Receipt Date: 20131115
  Transmission Date: 20140711
  Serious: Yes (Other)
  Sender: FDA-Public Use
  Company Number: None

PATIENT
  Age: 43 Year
  Sex: Female

DRUGS (2)
  1. FACTIVE [Suspect]
     Indication: SINUSITIS
     Dosage: 1 TABLET
     Route: 048
     Dates: start: 20131104, end: 20131110
  2. FACTIVE [Suspect]
     Indication: PHARYNGITIS STREPTOCOCCAL
     Dosage: 1 TABLET
     Route: 048
     Dates: start: 20131104, end: 20131110

REACTIONS (4)
  - Rash generalised [None]
  - Pruritus [None]
  - Pain [None]
  - Blister [None]
